FAERS Safety Report 8809328 (Version 1)
Quarter: 2012Q4

REPORT INFORMATION
  Report Type: 
  Country: CO (occurrence: CO)
  Receive Date: 20120926
  Receipt Date: 20120926
  Transmission Date: 20130627
  Serious: Yes (Other)
  Sender: FDA-Public Use
  Company Number: CO-PFIZER INC-2012237880

PATIENT
  Sex: Female

DRUGS (2)
  1. LYRICA [Suspect]
     Indication: SCIATIC NERVE INJURY
     Dosage: 75 mg, 1x/day
     Route: 048
     Dates: start: 201207, end: 20120917
  2. LYRICA [Suspect]
     Dosage: 75 mg, each 2 days
     Route: 048
     Dates: start: 20120917

REACTIONS (6)
  - Dysphonia [Not Recovered/Not Resolved]
  - Vocal cord inflammation [Not Recovered/Not Resolved]
  - Increased appetite [Not Recovered/Not Resolved]
  - Weight increased [Not Recovered/Not Resolved]
  - Somnolence [Not Recovered/Not Resolved]
  - Anxiety [Not Recovered/Not Resolved]
